FAERS Safety Report 12379358 (Version 2)
Quarter: 2016Q3

REPORT INFORMATION
  Report Type: Spontaneous
  Country: US (occurrence: US)
  Receive Date: 20160517
  Receipt Date: 20160901
  Transmission Date: 20161109
  Serious: No
  Sender: FDA-Public Use
  Company Number: US-RELYPSA-RLY2016000401

PATIENT
  Sex: Male

DRUGS (33)
  1. LOMOTIL [Concomitant]
     Active Substance: ATROPINE SULFATE\DIPHENOXYLATE HYDROCHLORIDE
  2. METHADONE HCL [Concomitant]
     Active Substance: METHADONE HYDROCHLORIDE
  3. MULTIVITAMINS, PLAIN [Concomitant]
     Active Substance: VITAMINS
  4. NITROGLYCERIN. [Concomitant]
     Active Substance: NITROGLYCERIN
  5. PREDNISONE. [Concomitant]
     Active Substance: PREDNISONE
  6. PROBIOTIC                          /06395501/ [Concomitant]
     Active Substance: BIFIDOBACTERIUM ANIMALIS SUBSP. LACTIS
  7. CYTRA-K [Concomitant]
     Active Substance: CITRIC ACID MONOHYDRATE\POTASSIUM CITRATE
  8. PROCRIT [Concomitant]
     Active Substance: ERYTHROPOIETIN
  9. PROVIGIL [Concomitant]
     Active Substance: MODAFINIL
  10. ALLOPURINOL. [Concomitant]
     Active Substance: ALLOPURINOL
  11. METOPROLOL TARTRATE. [Concomitant]
     Active Substance: METOPROLOL TARTRATE
  12. TEMAZEPAM. [Concomitant]
     Active Substance: TEMAZEPAM
  13. FLOMAX [Concomitant]
     Active Substance: TAMSULOSIN HYDROCHLORIDE
  14. LEVOTHYROXINE SODIUM. [Concomitant]
     Active Substance: LEVOTHYROXINE SODIUM
  15. MEDROL [Concomitant]
     Active Substance: METHYLPREDNISOLONE
  16. VITAMIN B12 [Concomitant]
     Active Substance: CYANOCOBALAMIN
  17. ZEMPLAR [Concomitant]
     Active Substance: PARICALCITOL
  18. VELTASSA [Suspect]
     Active Substance: PATIROMER
     Indication: HYPERKALAEMIA
     Dosage: 8.4 G, QD
     Route: 048
     Dates: start: 20160323
  19. FIBERCON [Concomitant]
     Active Substance: CALCIUM POLYCARBOPHIL
  20. ZOCOR [Concomitant]
     Active Substance: SIMVASTATIN
  21. AMLODIPINE BESYLATE. [Concomitant]
     Active Substance: AMLODIPINE BESYLATE
  22. CALCIUM D3                         /00944201/ [Concomitant]
     Active Substance: CALCIUM CARBONATE\CHOLECALCIFEROL
  23. COLCRYS [Concomitant]
     Active Substance: COLCHICINE
  24. COLACE [Concomitant]
     Active Substance: DOCUSATE SODIUM
  25. HYDROXYZINE HCL [Concomitant]
     Active Substance: HYDROXYZINE HYDROCHLORIDE
  26. KIONEX [Concomitant]
     Active Substance: SODIUM POLYSTYRENE SULFONATE
  27. LYRICA [Concomitant]
     Active Substance: PREGABALIN
  28. ASPIRIN                            /00002701/ [Concomitant]
     Active Substance: ASPIRIN
  29. BENTYL [Concomitant]
     Active Substance: DICYCLOMINE HYDROCHLORIDE
  30. CYCLOBENZAPRINE HCL [Concomitant]
     Active Substance: CYCLOBENZAPRINE HYDROCHLORIDE
  31. FOSAMAX [Concomitant]
     Active Substance: ALENDRONATE SODIUM
  32. MACRODANTIN [Concomitant]
     Active Substance: NITROFURANTOIN
  33. ZOFRAN [Concomitant]
     Active Substance: ONDANSETRON HYDROCHLORIDE

REACTIONS (1)
  - Faeces hard [Unknown]
